FAERS Safety Report 18665996 (Version 1)
Quarter: 2020Q4

REPORT INFORMATION
  Report Type: Spontaneous
  Country: JP (occurrence: JP)
  Receive Date: 20201226
  Receipt Date: 20201226
  Transmission Date: 20210114
  Serious: Yes (Other)
  Sender: FDA-Public Use
  Company Number: JP-AMGEN-JPNSP2020210962

PATIENT
  Age: 83 Year
  Sex: Female

DRUGS (7)
  1. PRALIA [Suspect]
     Active Substance: DENOSUMAB
     Indication: OSTEOPOROSIS
     Dosage: UNK
     Route: 065
  2. TARLIGE [Suspect]
     Active Substance: MIROGABALIN BESYLATE
     Indication: NEURALGIA
     Dosage: 5 MG, QD
     Route: 048
     Dates: start: 20201022, end: 20201027
  3. TARLIGE [Suspect]
     Active Substance: MIROGABALIN BESYLATE
     Dosage: 5 MG, BID
     Route: 048
     Dates: start: 20201028, end: 20201208
  4. TARLIGE [Suspect]
     Active Substance: MIROGABALIN BESYLATE
     Dosage: 10 MG, BID
     Route: 048
     Dates: start: 20201209, end: 20201216
  5. LOXOPROFEN SODIUM HYDRATE [Concomitant]
     Active Substance: LOXOPROFEN SODIUM DIHYDRATE
     Dosage: UNK
     Route: 065
  6. CALONAL [Concomitant]
     Active Substance: ACETAMINOPHEN
     Dosage: UNK
     Route: 065
  7. ELDECALCITOL [Concomitant]
     Active Substance: ELDECALCITOL
     Dosage: UNK
     Route: 065

REACTIONS (2)
  - Muscular weakness [Recovered/Resolved]
  - Femur fracture [Not Recovered/Not Resolved]

NARRATIVE: CASE EVENT DATE: 202010
